FAERS Safety Report 8503261-2 (Version None)
Quarter: 2012Q3

REPORT INFORMATION
  Report Type: 
  Country: None (occurrence: None)
  Receive Date: 20120711
  Receipt Date: 20120706
  Transmission Date: 20120928
  Serious: No
  Sender: FDA-Public Use
  Company Number: US-PFIZER INC-2012162441

PATIENT
  Age: 41 Year
  Sex: Female

DRUGS (1)
  1. LYRICA [Suspect]
     Indication: FIBROMYALGIA
     Dosage: 60 DAYS 75 MG, 2X/DAY

REACTIONS (5)
  - MOUTH ULCERATION [None]
  - CONSTIPATION [None]
  - BACK PAIN [None]
  - THINKING ABNORMAL [None]
  - WEIGHT INCREASED [None]
